FAERS Safety Report 7974769-3 (Version None)
Quarter: 2011Q4

REPORT INFORMATION
  Report Type: 
  Country: None (occurrence: None)
  Receive Date: 20111213
  Receipt Date: 20111129
  Transmission Date: 20120403
  Serious: Yes (Other)
  Sender: FDA-Public Use
  Company Number: AR-MILLENNIUM PHARMACEUTICALS, INC.-2011-06201

PATIENT

DRUGS (3)
  1. VELCADE [Suspect]
     Indication: MULTIPLE MYELOMA
     Dosage: 1.3 MG/M2, UNK
  2. THALIDOMIDE [Concomitant]
     Dosage: 200 MG, UNK
     Route: 065
  3. DEXAMETHASONE [Concomitant]
     Route: 065

REACTIONS (2)
  - STEVENS-JOHNSON SYNDROME [None]
  - NEUROPATHY PERIPHERAL [None]
